FAERS Safety Report 13185018 (Version 1)
Quarter: 2017Q1

REPORT INFORMATION
  Report Type: Spontaneous
  Country: GB (occurrence: GB)
  Receive Date: 20170203
  Receipt Date: 20170203
  Transmission Date: 20170428
  Serious: Yes (Other)
  Sender: FDA-Public Use
  Company Number: GB-CANTON LABORATORIES, LLC-1062714

PATIENT
  Age: 32 Year
  Sex: Female
  Weight: 89 kg

DRUGS (7)
  1. CO-CODAMOL (CODEINE PHOSPHATE, PARACETAMOL) [Concomitant]
     Route: 065
     Dates: start: 20161115, end: 20161127
  2. GABAPENTIN. [Concomitant]
     Active Substance: GABAPENTIN
     Route: 065
     Dates: start: 20161115, end: 20161213
  3. NAPROSYN [Suspect]
     Active Substance: NAPROXEN
     Indication: PRODUCT USED FOR UNKNOWN INDICATION
     Route: 065
     Dates: start: 20170110
  4. BECLOMETASONE [Concomitant]
     Active Substance: BECLOMETHASONE DIPROPIONATE
     Route: 065
     Dates: start: 20170109
  5. CHLORPHENAMINE [Concomitant]
     Active Substance: CHLORPHENIRAMINE MALEATE
     Route: 065
     Dates: start: 20170110
  6. CLARITHROMYCIN. [Concomitant]
     Active Substance: CLARITHROMYCIN
     Route: 065
     Dates: start: 20161103, end: 20161110
  7. OTOMIZE (DEXAMETHASONE, NEOMYCIN SULPHATE, GLACIAL ACETIC ACID) [Concomitant]
     Route: 065
     Dates: start: 20161213, end: 20161220

REACTIONS (4)
  - Eye swelling [Recovered/Resolved]
  - Cough [Unknown]
  - Sneezing [Unknown]
  - Dyspnoea [Unknown]

NARRATIVE: CASE EVENT DATE: 20170110
